FAERS Safety Report 21675488 (Version 1)
Quarter: 2022Q4

REPORT INFORMATION
  Report Type: Spontaneous
  Country: US (occurrence: US)
  Receive Date: 20221202
  Receipt Date: 20221202
  Transmission Date: 20230113
  Serious: Yes (Other)
  Sender: FDA-Public Use
  Company Number: US-INSUD PHARMA-2211US05049

PATIENT

DRUGS (2)
  1. TESTOSTERONE [Suspect]
     Active Substance: TESTOSTERONE
     Indication: Hypogonadism male
     Dosage: EXCEEDED REGULAR REPLACEMENT THERAPY DOSE, WAS IN RANGE OF FEMALE-TO-MALE TRANSGENDER REASSIGNMENT T
     Route: 030
  2. TESTOSTERONE [Suspect]
     Active Substance: TESTOSTERONE
     Indication: Muscle building therapy

REACTIONS (6)
  - Intracranial pressure increased [Recovering/Resolving]
  - Vision blurred [Recovering/Resolving]
  - Visual acuity reduced [Recovering/Resolving]
  - Headache [Recovered/Resolved]
  - Papilloedema [Recovering/Resolving]
  - Intentional product misuse [Unknown]
